FAERS Safety Report 15345699 (Version 1)
Quarter: 2018Q3

REPORT INFORMATION
  Report Type: Spontaneous
  Country: IT (occurrence: IT)
  Receive Date: 20180904
  Receipt Date: 20180904
  Transmission Date: 20181010
  Serious: Yes (Other)
  Sender: FDA-Public Use
  Company Number: IT-TEVA-2018-IT-941726

PATIENT
  Age: 35 Year
  Sex: Female
  Weight: 64 kg

DRUGS (1)
  1. COPAXONE [Suspect]
     Active Substance: GLATIRAMER ACETATE
     Indication: MULTIPLE SCLEROSIS
     Route: 058
     Dates: start: 20160523, end: 20180615

REACTIONS (4)
  - Human papilloma virus test positive [Unknown]
  - Cervical dysplasia [Unknown]
  - Menorrhagia [Unknown]
  - Biopsy cervix [Unknown]

NARRATIVE: CASE EVENT DATE: 20180518
